FAERS Safety Report 14040373 (Version 8)
Quarter: 2018Q3

REPORT INFORMATION
  Report Type: Report from Study
  Country: US (occurrence: US)
  Receive Date: 20171004
  Receipt Date: 20180913
  Transmission Date: 20181010
  Serious: Yes (Hospitalization)
  Sender: FDA-Public Use
  Company Number: US-ACTELION-A-NJ2016-138829

PATIENT
  Age: 51 Year
  Sex: Female
  Weight: 106.12 kg

DRUGS (5)
  1. VELETRI [Suspect]
     Active Substance: EPOPROSTENOL
     Dosage: 4.5 NG/KG, PER MIN
     Route: 042
  2. ADEMPAS [Concomitant]
     Active Substance: RIOCIGUAT
     Dosage: 1 MG, TID
  3. LETAIRIS [Concomitant]
     Active Substance: AMBRISENTAN
  4. OXYGEN. [Concomitant]
     Active Substance: OXYGEN
  5. VELETRI [Suspect]
     Active Substance: EPOPROSTENOL
     Indication: PULMONARY ARTERIAL HYPERTENSION
     Dosage: 4.46 NG/KG, PER MIN
     Route: 042
     Dates: start: 20160304

REACTIONS (30)
  - Catheter placement [Unknown]
  - Upper respiratory tract infection [Recovered/Resolved]
  - Palpitations [Unknown]
  - Device related infection [Unknown]
  - Dyspepsia [Unknown]
  - Hiatus hernia [Unknown]
  - Oxygen saturation [Unknown]
  - Drug dose omission [Unknown]
  - Abdominal discomfort [Not Recovered/Not Resolved]
  - Ear pain [Unknown]
  - Flatulence [Unknown]
  - Wheezing [Unknown]
  - Pyrexia [Unknown]
  - Constipation [Not Recovered/Not Resolved]
  - Sinusitis [Unknown]
  - Catheter site pain [Unknown]
  - Headache [Not Recovered/Not Resolved]
  - Somnolence [Unknown]
  - Catheter management [Unknown]
  - Urinary tract infection bacterial [Unknown]
  - Fluid retention [Unknown]
  - Dyspnoea exertional [Unknown]
  - Diarrhoea [Not Recovered/Not Resolved]
  - Weight increased [Unknown]
  - Dyspnoea [Unknown]
  - Device connection issue [Unknown]
  - Fatigue [Unknown]
  - Pneumonia [Unknown]
  - Nasopharyngitis [Unknown]
  - Nausea [Unknown]

NARRATIVE: CASE EVENT DATE: 201809
